FAERS Safety Report 15232745 (Version 1)
Quarter: 2018Q3

REPORT INFORMATION
  Report Type: Spontaneous
  Country: FR (occurrence: FR)
  Receive Date: 20180802
  Receipt Date: 20180802
  Transmission Date: 20181010
  Serious: Yes (Hospitalization)
  Sender: FDA-Public Use
  Company Number: FR-TEVA-2018-FR-934009

PATIENT
  Sex: Male
  Weight: 90 kg

DRUGS (4)
  1. CLOZAPINE. [Suspect]
     Active Substance: CLOZAPINE
     Indication: SCHIZOPHRENIA
     Dosage: 400 MILLIGRAM DAILY;
     Route: 048
     Dates: end: 20180621
  2. CARDENSIEL 10 MG, COMPRIM? PELLICUL? S?CABLE [Concomitant]
     Indication: HYPERTENSION
     Dosage: 2 DOSAGE FORMS DAILY;
     Route: 048
     Dates: start: 201702
  3. MOVICOL [Concomitant]
     Active Substance: POLYETHYLENE GLYCOL 3350\POTASSIUM CHLORIDE\SODIUM BICARBONATE\SODIUM CHLORIDE
     Route: 048
     Dates: end: 20180621
  4. DEPAKOTE [Suspect]
     Active Substance: DIVALPROEX SODIUM
     Indication: SCHIZOPHRENIA
     Dosage: 4 DOSAGE FORMS DAILY;
     Route: 048
     Dates: end: 20180621

REACTIONS (3)
  - Pancreatitis [Not Recovered/Not Resolved]
  - Hypertriglyceridaemia [Recovering/Resolving]
  - Diabetic ketoacidotic hyperglycaemic coma [Not Recovered/Not Resolved]

NARRATIVE: CASE EVENT DATE: 20160325
